FAERS Safety Report 4762928-2 (Version None)
Quarter: 2005Q3

REPORT INFORMATION
  Report Type: 
  Country: None (occurrence: None)
  Receive Date: 20050907
  Receipt Date: 20050829
  Transmission Date: 20060218
  Serious: Yes (Death)
  Sender: FDA-Public Use
  Company Number: DE-BRISTOL-MYERS SQUIBB COMPANY-13093372

PATIENT
  Age: 58 Year
  Sex: Male
  Weight: 44 kg

DRUGS (3)
  1. CARBOPLATIN [Suspect]
     Indication: OESOPHAGEAL CARCINOMA
     Route: 042
     Dates: start: 20050629
  2. 5-FU [Suspect]
     Indication: OESOPHAGEAL CARCINOMA
     Route: 042
     Dates: start: 20050629, end: 20050630
  3. CLINDA-SAAR [Suspect]
     Dates: start: 20050626, end: 20050703

REACTIONS (1)
  - HEPATIC FAILURE [None]
